FAERS Safety Report 5007748-9 (Version None)
Quarter: 2006Q2

REPORT INFORMATION
  Report Type: 
  Country: None (occurrence: None)
  Receive Date: 20060517
  Receipt Date: 20060506
  Transmission Date: 20061013
  Serious: Yes (Other)
  Sender: FDA-Public Use
  Company Number: 2006061045

PATIENT
  Age: 35 Year
  Sex: Female

DRUGS (10)
  1. DEPO-ESTRADIOL [Suspect]
     Indication: HORMONE REPLACEMENT THERAPY
     Dosage: 15 MG ( 5 MG, EVERY 21 DAYS), INTRAMUSCULAR
     Route: 030
     Dates: start: 20050101
  2. FISH OIL (FISH OIL) [Suspect]
     Indication: ILL-DEFINED DISORDER
     Dosage: ORAL
     Route: 048
     Dates: start: 20050101, end: 20050101
  3. LINSEED OIL (LINSEED OIL) [Suspect]
     Indication: ILL-DEFINED DISORDER
     Dosage: ORAL
     Route: 048
     Dates: start: 20050101, end: 20050101
  4. IMIPRAMINE [Concomitant]
  5. ZOCOR [Concomitant]
  6. BISACODYL (BISACODYL) [Concomitant]
  7. INTERFERON BETA (INTERFERON BETA) [Concomitant]
  8. MULTIVITAMIN [Concomitant]
  9. WELLBUTRIN [Concomitant]
  10. LOTREL [Concomitant]

REACTIONS (10)
  - APHAGIA [None]
  - BREAST PAIN [None]
  - CANDIDIASIS [None]
  - CONTUSION [None]
  - DYSGEUSIA [None]
  - GLOSSODYNIA [None]
  - LIMB INJURY [None]
  - SCAR [None]
  - VASCULAR INJURY [None]
  - WEIGHT FLUCTUATION [None]
